FAERS Safety Report 8543608-4 (Version None)
Quarter: 2012Q3

REPORT INFORMATION
  Report Type: 
  Country: None (occurrence: None)
  Receive Date: 20120727
  Receipt Date: 20120719
  Transmission Date: 20120928
  Serious: Yes (Other)
  Sender: FDA-Public Use
  Company Number: US-VERTEX PHARMACEUTICALS INC.-AE-2012-010601

PATIENT
  Sex: Female
  Weight: 72.5 kg

DRUGS (11)
  1. PEGASYS [Suspect]
     Indication: HEPATITIS C
     Route: 058
     Dates: start: 20120507
  2. GAS-X [Concomitant]
     Dates: start: 20120626
  3. VX-222 [Suspect]
     Indication: HEPATITIS C
     Route: 048
     Dates: start: 20120507, end: 20120718
  4. TYLENOL [Concomitant]
     Indication: MIGRAINE
     Dates: start: 19800101
  5. RIBAVIRIN [Suspect]
     Indication: HEPATITIS C
     Route: 048
     Dates: start: 20120507
  6. TELAPREVIR [Suspect]
     Indication: HEPATITIS C
     Route: 048
     Dates: start: 20120507, end: 20120718
  7. GOLD BOND INTENSIVE HEALING CREAM [Concomitant]
     Indication: RASH PRURITIC
     Dates: start: 20120711
  8. MULTI-VITAMINS [Concomitant]
     Dates: start: 20120322
  9. TRAMADOL HYDROCHLORIDE [Concomitant]
     Indication: MIGRAINE
     Dates: start: 20120416
  10. METROGEL [Concomitant]
     Indication: ROSACEA
     Dates: start: 20120416
  11. EQUATE ALLERGY RELIEF [Concomitant]
     Indication: RASH PRURITIC
     Dates: start: 20120711

REACTIONS (1)
  - RASH [None]
